FAERS Safety Report 6438192-5 (Version None)
Quarter: 2009Q4

REPORT INFORMATION
  Report Type: 
  Country: None (occurrence: None)
  Receive Date: 20091109
  Receipt Date: 20091102
  Transmission Date: 20100525
  Serious: Yes (Death)
  Sender: FDA-Public Use
  Company Number: 2009SP034365

PATIENT
  Age: 74 Year
  Sex: Female

DRUGS (7)
  1. REMERON [Suspect]
     Indication: DEPRESSION
     Dosage: 15 MG; PO
     Route: 048
     Dates: start: 20090930, end: 20091002
  2. PAXIL [Concomitant]
  3. MYSLEE [Concomitant]
  4. TRIAZOLAM [Concomitant]
  5. RIZE [Concomitant]
  6. ABILIT [Concomitant]
  7. RESLIN [Concomitant]

REACTIONS (3)
  - AGITATION [None]
  - COMPLETED SUICIDE [None]
  - TREATMENT NONCOMPLIANCE [None]
